FAERS Safety Report 15985186 (Version 1)
Quarter: 2019Q1

REPORT INFORMATION
  Report Type: Report from Study
  Country: CN (occurrence: CN)
  Receive Date: 20190220
  Receipt Date: 20190220
  Transmission Date: 20190418
  Serious: Yes (Hospitalization)
  Sender: FDA-Public Use
  Company Number: CN-ASTRAZENECA-2019SE20974

PATIENT
  Sex: Female
  Weight: 63.3 kg

DRUGS (1)
  1. BYDUREON [Suspect]
     Active Substance: EXENATIDE
     Indication: DIABETES MELLITUS
     Route: 058
     Dates: start: 20190110

REACTIONS (2)
  - Diabetes mellitus inadequate control [Not Recovered/Not Resolved]
  - Injection site pain [Not Recovered/Not Resolved]
